FAERS Safety Report 10510500 (Version 2)
Quarter: 2016Q1

REPORT INFORMATION
  Report Type: Report from Study
  Country: US (occurrence: US)
  Receive Date: 20141010
  Receipt Date: 20160307
  Transmission Date: 20160525
  Serious: Yes (Hospitalization, Other)
  Sender: FDA-Public Use
  Company Number: US-ROCHE-1471934

PATIENT
  Age: 53 Year
  Sex: Female
  Weight: 73 kg

DRUGS (7)
  1. PERCOCET [Concomitant]
     Active Substance: ACETAMINOPHEN\OXYCODONE HYDROCHLORIDE
  2. XELODA [Suspect]
     Active Substance: CAPECITABINE
     Indication: SQUAMOUS CELL CARCINOMA OF THE CERVIX
     Route: 048
     Dates: start: 20130111
  3. AVASTIN [Suspect]
     Active Substance: BEVACIZUMAB
     Indication: PRODUCT USED FOR UNKNOWN INDICATION
     Route: 065
     Dates: start: 201101
  4. XELODA [Suspect]
     Active Substance: CAPECITABINE
     Indication: HEPATIC NEOPLASM
     Route: 048
     Dates: start: 20121129
  5. CISPLATIN. [Concomitant]
     Active Substance: CISPLATIN
     Route: 065
     Dates: start: 20091123, end: 20100106
  6. TOPOTECAN [Concomitant]
     Active Substance: TOPOTECAN\TOPOTECAN HYDROCHLORIDE
     Route: 065
     Dates: end: 201101
  7. XELODA [Suspect]
     Active Substance: CAPECITABINE
     Indication: CERVIX CARCINOMA
     Dosage: FOR 14 DAYS ON AND 7 DAYS OFF
     Route: 048

REACTIONS (9)
  - Liver disorder [Unknown]
  - Hypoaesthesia [Unknown]
  - Hydronephrosis [Unknown]
  - Palmar-plantar erythrodysaesthesia syndrome [Unknown]
  - Paraesthesia [Not Recovered/Not Resolved]
  - Rash [Not Recovered/Not Resolved]
  - Off label use [Unknown]
  - Acute kidney injury [Unknown]
  - Therapy responder [Unknown]

NARRATIVE: CASE EVENT DATE: 201211
